FAERS Safety Report 12608064 (Version 4)
Quarter: 2016Q4

REPORT INFORMATION
  Report Type: Report from Study
  Country: JP (occurrence: JP)
  Receive Date: 20160729
  Receipt Date: 20161201
  Transmission Date: 20170207
  Serious: Yes (Death, Hospitalization)
  Sender: FDA-Public Use
  Company Number: JP-EISAI MEDICAL RESEARCH-EC-2016-018863

PATIENT
  Age: 77 Year
  Sex: Female
  Weight: 47 kg

DRUGS (18)
  1. CELECOX [Suspect]
     Active Substance: CELECOXIB
     Indication: PERIARTHRITIS
     Route: 048
     Dates: start: 20151127, end: 20160801
  2. CELECOX [Suspect]
     Active Substance: CELECOXIB
     Indication: BACK PAIN
  3. DONEPEZIL. [Suspect]
     Active Substance: DONEPEZIL
     Dosage: 10 MG OR PLACEBO
     Route: 048
     Dates: start: 20160220, end: 20160318
  4. BIOFERMIN [Concomitant]
     Active Substance: BACILLUS SUBTILIS\LACTOBACILLUS ACIDOPHILUS\STREPTOCOCCUS FAECAIS
  5. DONEPEZIL. [Suspect]
     Active Substance: DONEPEZIL
     Indication: DEMENTIA WITH LEWY BODIES
     Dosage: 3 MG OR PLACEBO
     Route: 048
     Dates: start: 20160109, end: 20160122
  6. AZUNOL [Concomitant]
     Active Substance: SODIUM GUALENATE
  7. RISEDRONATE NA [Concomitant]
     Active Substance: RISEDRONATE SODIUM
  8. DONEPEZIL. [Suspect]
     Active Substance: DONEPEZIL
     Dosage: 5 MG OR PLACEBO
     Route: 048
     Dates: start: 20160123, end: 20160219
  9. DONEPEZIL. [Suspect]
     Active Substance: DONEPEZIL
     Dosage: 5 MG OR 10 MG
     Route: 048
     Dates: start: 20160402, end: 20160429
  10. ALFACALCIDOL [Concomitant]
     Active Substance: ALFACALCIDOL
  11. DONEPEZIL. [Suspect]
     Active Substance: DONEPEZIL
     Route: 048
     Dates: start: 20160430, end: 20160721
  12. NIFEDIPINE. [Concomitant]
     Active Substance: NIFEDIPINE
  13. DEPROMEL [Concomitant]
     Active Substance: FLUVOXAMINE
  14. DONEPEZIL. [Suspect]
     Active Substance: DONEPEZIL
     Dosage: 3 MG OR 10 MG
     Route: 048
     Dates: start: 20160319, end: 20160401
  15. DEPAS [Concomitant]
     Active Substance: ETIZOLAM
  16. REBAMIPIDE [Concomitant]
     Active Substance: REBAMIPIDE
  17. MAGMITT [Concomitant]
     Active Substance: MAGNESIUM OXIDE
  18. SENNA [Concomitant]
     Active Substance: SENNA LEAF\SENNOSIDES\SENNOSIDES A AND B

REACTIONS (3)
  - Spinal compression fracture [Not Recovered/Not Resolved]
  - Decreased appetite [Recovered/Resolved]
  - Pulmonary embolism [Fatal]

NARRATIVE: CASE EVENT DATE: 20160720
